FAERS Safety Report 8089679-3 (Version None)
Quarter: 2012Q1

REPORT INFORMATION
  Report Type: 
  Country: None (occurrence: None)
  Receive Date: 20120128
  Receipt Date: 20110819
  Transmission Date: 20120608
  Serious: No
  Sender: FDA-Public Use
  Company Number: US-ABBOTT-11P-163-0730192-00

PATIENT
  Age: 42 Year
  Sex: Male

DRUGS (3)
  1. HUMIRA [Suspect]
     Indication: PSORIASIS
     Dates: start: 20110103, end: 20110301
  2. HUMIRA [Suspect]
     Dosage: RESTART THERAPY WITH LOADING DOSE
  3. DICLOFENAC [Concomitant]
     Dosage: TWICE A DAY
     Route: 048

REACTIONS (3)
  - HEPATIC ENZYME INCREASED [None]
  - PAIN [None]
  - PSORIASIS [None]
